FAERS Safety Report 4323130-1 (Version None)
Quarter: 2004Q1

REPORT INFORMATION
  Report Type: 
  Country: None (occurrence: None)
  Receive Date: 20040324
  Receipt Date: 20040324
  Transmission Date: 20041129
  Serious: No
  Sender: FDA-Public Use
  Company Number: None

PATIENT
  Age: 63 Year
  Sex: Male
  Weight: 64 kg

DRUGS (1)
  1. HCTZ/IRBESARTAN 12.5 MG/150 MG? [Suspect]
     Indication: HYPERTENSION
     Dosage: 12.5 /150 MG PO QD
     Route: 048
     Dates: start: 20040219, end: 20040301

REACTIONS (2)
  - ABDOMINAL DISCOMFORT [None]
  - MUSCLE CRAMP [None]
